FAERS Safety Report 21713212 (Version 3)
Quarter: 2022Q4

REPORT INFORMATION
  Report Type: Spontaneous
  Country: CA (occurrence: CA)
  Receive Date: 20221212
  Receipt Date: 20221223
  Transmission Date: 20230113
  Serious: Yes (Hospitalization, Other)
  Sender: FDA-Public Use
  Company Number: CA-GSKCCFAMERS-Case-01566622_AE-88559

PATIENT

DRUGS (2)
  1. VENTOLIN HFA [Suspect]
     Active Substance: ALBUTEROL SULFATE
     Indication: Product used for unknown indication
     Dosage: UNK
     Route: 065
  2. ADVAIR HFA [Suspect]
     Active Substance: FLUTICASONE PROPIONATE\SALMETEROL XINAFOATE
     Indication: Product used for unknown indication
     Dosage: UNK

REACTIONS (34)
  - Hospitalisation [Unknown]
  - Hypoxia [Unknown]
  - Dyspnoea [Unknown]
  - Cardiac failure [Unknown]
  - Bell^s palsy [Unknown]
  - Dry mouth [Unknown]
  - Taste disorder [Unknown]
  - Dry eye [Unknown]
  - Nausea [Unknown]
  - Cough [Unknown]
  - Vomiting [Unknown]
  - Oral candidiasis [Unknown]
  - Fatigue [Unknown]
  - Muscle spasms [Unknown]
  - Gait disturbance [Unknown]
  - Cardiac disorder [Unknown]
  - Blood pressure fluctuation [Unknown]
  - Fear [Unknown]
  - Alpha-1 anti-trypsin decreased [Unknown]
  - Illness [Unknown]
  - Mental disorder [Unknown]
  - Chapped lips [Unknown]
  - Dry skin [Unknown]
  - Visual impairment [Unknown]
  - Nasal dryness [Unknown]
  - Poor quality sleep [Unknown]
  - Contusion [Unknown]
  - Tinnitus [Unknown]
  - Head discomfort [Unknown]
  - Overdose [Unknown]
  - Drug effect less than expected [Unknown]
  - Drug ineffective [Unknown]
  - Suspected counterfeit product [Unknown]
  - Product complaint [Unknown]
